FAERS Safety Report 7018225-8 (Version None)
Quarter: 2010Q3

REPORT INFORMATION
  Report Type: 
  Country: None (occurrence: None)
  Receive Date: 20100928
  Receipt Date: 20100921
  Transmission Date: 20110219
  Serious: Yes (Death, Life-Threatening, Other)
  Sender: FDA-Public Use
  Company Number: JP-ROCHE-729176

PATIENT
  Sex: Female
  Weight: 41 kg

DRUGS (3)
  1. CAPECITABINE [Suspect]
     Indication: GASTRIC CANCER
     Dosage: REPORTED AS: XELODA 300, NOTE: 2 WEEKS ADMINISTRATION FOLLOWED BY 1 WEEK REST.
     Route: 048
     Dates: start: 20091217, end: 20100527
  2. CISPLATIN [Suspect]
     Indication: GASTRIC CANCER
     Route: 042
     Dates: start: 20091217, end: 20100415
  3. ERBITUX [Concomitant]
     Route: 042
     Dates: start: 20091217, end: 20100519

REACTIONS (2)
  - NEUTROPENIA [None]
  - SEPSIS [None]
